FAERS Safety Report 4686367-8 (Version None)
Quarter: 2005Q2

REPORT INFORMATION
  Report Type: 
  Country: None (occurrence: None)
  Receive Date: 20050606
  Receipt Date: 20050520
  Transmission Date: 20051028
  Serious: Yes (Disabling)
  Sender: FDA-Public Use
  Company Number: GBS050517460

PATIENT
  Age: 54 Year
  Sex: Female
  Weight: 59 kg

DRUGS (8)
  1. GEMCITABINE HYDROCHLORIDE-IV (GEMCITABINE) [Suspect]
     Indication: OVARIAN CANCER
     Dosage: 1200 MG
     Dates: start: 20040602, end: 20041006
  2. TAXOL [Concomitant]
  3. CHLORPHENIRAMINE MALEATE [Concomitant]
  4. CARBOPLATIN [Concomitant]
  5. DOMPERIDONE [Concomitant]
  6. DEXAMETHASONE [Concomitant]
  7. RANITIDINE [Concomitant]
  8. GRANISETRON [Concomitant]

REACTIONS (1)
  - LEUKOENCEPHALOPATHY [None]
